FAERS Safety Report 9220635 (Version 1)
Quarter: 2013Q2

REPORT INFORMATION
  Report Type: Spontaneous
  Country: GB (occurrence: GB)
  Receive Date: 20130409
  Receipt Date: 20130409
  Transmission Date: 20140414
  Serious: Yes (Other)
  Sender: FDA-Public Use
  Company Number: GB-TEVA-396228ISR

PATIENT
  Age: 68 Year
  Sex: Male
  Weight: 101 kg

DRUGS (1)
  1. OXALIPLATIN [Suspect]
     Indication: COLON CANCER
     Route: 042
     Dates: start: 20130206, end: 20130319

REACTIONS (1)
  - Hypoaesthesia [Recovering/Resolving]
